FAERS Safety Report 20372198 (Version 2)
Quarter: 2022Q1

REPORT INFORMATION
  Report Type: Report from Study
  Country: IN (occurrence: IN)
  Receive Date: 20220124
  Receipt Date: 20220201
  Transmission Date: 20220424
  Serious: Yes (Hospitalization)
  Sender: FDA-Public Use
  Company Number: IN-BAXTER-2022BAX001536

PATIENT
  Age: 79 Year
  Sex: Male

DRUGS (1)
  1. CALCIUM CHLORIDE\DEXTROSE\MAGNESIUM CHLORIDE\SODIUM CHLORIDE\SODIUM LA [Suspect]
     Active Substance: CALCIUM CHLORIDE\DEXTROSE\MAGNESIUM CHLORIDE\SODIUM CHLORIDE\SODIUM LACTATE
     Indication: Renal failure
     Dosage: 3 BAGS
     Route: 033

REACTIONS (4)
  - Mouth ulceration [Recovering/Resolving]
  - Asthenia [Recovering/Resolving]
  - Haemoglobin decreased [Recovering/Resolving]
  - Blood albumin decreased [Recovering/Resolving]

NARRATIVE: CASE EVENT DATE: 20220121
